FAERS Safety Report 6562041-8 (Version None)
Quarter: 2010Q1

REPORT INFORMATION
  Report Type: 
  Country: None (occurrence: None)
  Receive Date: 20100130
  Receipt Date: 20091116
  Transmission Date: 20100710
  Serious: No
  Sender: FDA-Public Use
  Company Number: US-ABBOTT-09P-163-0598945-00

PATIENT
  Sex: Female
  Weight: 74.91 kg

DRUGS (3)
  1. HUMIRA [Suspect]
     Indication: PSORIASIS
     Dates: start: 20090813, end: 20090813
  2. HUMIRA [Suspect]
     Dates: start: 20090820, end: 20090820
  3. HUMIRA [Suspect]
     Dates: start: 20090903

REACTIONS (2)
  - RASH [None]
  - RASH PRURITIC [None]
